FAERS Safety Report 5458462-7 (Version None)
Quarter: 2007Q3

REPORT INFORMATION
  Report Type: 
  Country: None (occurrence: None)
  Receive Date: 20070919
  Receipt Date: 20070403
  Transmission Date: 20080115
  Serious: No
  Sender: FDA-Public Use
  Company Number: US-ASTRAZENECA-2007UW06634

PATIENT
  Age: 51 Year
  Sex: Female
  Weight: 59 kg

DRUGS (6)
  1. SEROQUEL [Suspect]
     Indication: BIPOLAR DISORDER
  2. SEROQUEL [Suspect]
     Indication: DEPRESSION
  3. LORTAB [Concomitant]
  4. RELAFEN [Concomitant]
  5. REQUIP [Concomitant]
  6. OXYCONTIN WITH MORPHINE [Concomitant]

REACTIONS (3)
  - FEELING ABNORMAL [None]
  - SENSORY DISTURBANCE [None]
  - WEIGHT INCREASED [None]
